FAERS Safety Report 4374208-8 (Version None)
Quarter: 2004Q2

REPORT INFORMATION
  Report Type: 
  Country: None (occurrence: None)
  Receive Date: 20040609
  Receipt Date: 20040527
  Transmission Date: 20050107
  Serious: Yes (Hospitalization)
  Sender: FDA-Public Use
  Company Number: FR-JNJFOC-20040302978

PATIENT
  Age: 74 Year
  Sex: Male
  Weight: 77 kg

DRUGS (3)
  1. LEUSTATINE [Suspect]
     Indication: HAIRY CELL LEUKAEMIA
     Dates: start: 20040213, end: 20040217
  2. BACTRIM [Suspect]
     Route: 049
     Dates: start: 20040217, end: 20040221
  3. BACTRIM [Suspect]
     Route: 049
     Dates: start: 20040217, end: 20040221

REACTIONS (7)
  - ASTHENIA [None]
  - CHILLS [None]
  - DRUG INTERACTION [None]
  - PYREXIA [None]
  - RENAL FAILURE ACUTE [None]
  - RHABDOMYOLYSIS [None]
  - TOXIC SKIN ERUPTION [None]
